FAERS Safety Report 9276962 (Version 2)
Quarter: 2013Q2

REPORT INFORMATION
  Report Type: Spontaneous
  Country: JP (occurrence: JP)
  Receive Date: 20130507
  Receipt Date: 20130530
  Transmission Date: 20140414
  Serious: Yes (Other)
  Sender: FDA-Public Use
  Company Number: JP-PFIZER INC-2013140043

PATIENT
  Age: 8 Decade
  Sex: Female

DRUGS (5)
  1. CELECOX [Suspect]
     Dosage: 200 MG, DAILY
     Route: 048
     Dates: start: 20130401, end: 20130408
  2. GASTER [Concomitant]
     Dosage: 20 MG DAILY
     Dates: start: 20130401, end: 20130408
  3. OPALMON [Concomitant]
     Dosage: UNK
     Dates: start: 20130401, end: 20130408
  4. METHYCOBAL [Concomitant]
     Dosage: UNK
     Route: 048
     Dates: start: 20130401, end: 20130408
  5. LOXONIN [Concomitant]
     Indication: HYPOAESTHESIA
     Dosage: UNK
     Route: 048
     Dates: start: 20130327, end: 20130408

REACTIONS (1)
  - Abasia [Recovered/Resolved]
